FAERS Safety Report 6139368-7 (Version None)
Quarter: 2009Q2

REPORT INFORMATION
  Report Type: 
  Country: None (occurrence: None)
  Receive Date: 20090401
  Receipt Date: 20090325
  Transmission Date: 20091009
  Serious: Yes (Hospitalization, Other)
  Sender: FDA-Public Use
  Company Number: US-ROCHE-623652

PATIENT
  Sex: Male

DRUGS (3)
  1. XELODA [Suspect]
     Indication: COLON CANCER
     Route: 065
     Dates: start: 20080301, end: 20081015
  2. AVASTIN [Suspect]
     Indication: COLON CANCER
     Route: 065
     Dates: start: 20080301, end: 20081015
  3. HYDROCODONE [Concomitant]

REACTIONS (3)
  - PAIN [None]
  - RECURRENT CANCER [None]
  - SURGERY [None]
